FAERS Safety Report 24464965 (Version 2)
Quarter: 2025Q2

REPORT INFORMATION
  Report Type: Spontaneous
  Country: US (occurrence: US)
  Receive Date: 20241018
  Receipt Date: 20250418
  Transmission Date: 20250716
  Serious: No
  Sender: ROCHE
  Company Number: US-ROCHE-3516763

PATIENT
  Age: 37 Year
  Sex: Female

DRUGS (1)
  1. XOLAIR [Suspect]
     Active Substance: OMALIZUMAB
     Indication: Idiopathic urticaria
     Dosage: SINGLE-DOSE VIAL (SDV)
     Route: 058

REACTIONS (1)
  - Maternal exposure during pregnancy [Unknown]
